FAERS Safety Report 7354156-1 (Version None)
Quarter: 2011Q1

REPORT INFORMATION
  Report Type: 
  Country: None (occurrence: None)
  Receive Date: 20110316
  Receipt Date: 20110303
  Transmission Date: 20110831
  Serious: Yes (Other)
  Sender: FDA-Public Use
  Company Number: AR-AMGEN-ARGSP2011006785

PATIENT
  Age: 73 Year
  Sex: Female
  Weight: 50 kg

DRUGS (8)
  1. GABAPENTIN [Concomitant]
     Dosage: UNK
     Route: 048
  2. CALCIUM [Concomitant]
     Dosage: UNK
     Route: 048
  3. ENBREL [Suspect]
     Indication: RHEUMATOID ARTHRITIS
     Dosage: 50 MG, WEEKLY
     Route: 058
     Dates: start: 20100712, end: 20101101
  4. ENBREL [Suspect]
     Dosage: UNK
     Route: 058
     Dates: start: 20110127, end: 20110201
  5. AMLODIPINE [Concomitant]
     Dosage: UNK
     Route: 048
  6. ENALAPRIL MALEATE [Concomitant]
     Dosage: UNK
     Route: 048
  7. CORTICOSTEROIDS [Concomitant]
     Dosage: UNK
     Route: 048
  8. METHOTREXATE [Concomitant]
     Dosage: UNK
     Route: 048

REACTIONS (6)
  - WHITE BLOOD CELL COUNT DECREASED [None]
  - SPUTUM INCREASED [None]
  - PYREXIA [None]
  - STOMATITIS [None]
  - WEIGHT DECREASED [None]
  - OROPHARYNGEAL PAIN [None]
